FAERS Safety Report 14719936 (Version 3)
Quarter: 2018Q2

REPORT INFORMATION
  Report Type: Spontaneous
  Country: FR (occurrence: FR)
  Receive Date: 20180405
  Receipt Date: 20180604
  Transmission Date: 20180711
  Serious: Yes (Hospitalization)
  Sender: FDA-Public Use
  Company Number: PHHY2018FR058250

PATIENT
  Sex: Male
  Weight: 60 kg

DRUGS (4)
  1. TACROLIMUS. [Suspect]
     Active Substance: TACROLIMUS
     Dosage: 10 MG, QD
     Route: 048
     Dates: start: 20161104, end: 20161128
  2. TACROLIMUS. [Suspect]
     Active Substance: TACROLIMUS
     Indication: RENAL TRANSPLANT
     Dosage: 6 MG, QD
     Route: 048
     Dates: start: 20160912, end: 20161031
  3. CELLCEPT [Concomitant]
     Active Substance: MYCOPHENOLATE MOFETIL\MYCOPHENOLATE MOFETIL HYDROCHLORIDE
     Indication: IMMUNOSUPPRESSION
     Dosage: 3500 (UNKNOWN UNIT), ONCE DAILY
     Route: 065
     Dates: start: 20160904, end: 20161024
  4. CELLCEPT [Concomitant]
     Active Substance: MYCOPHENOLATE MOFETIL\MYCOPHENOLATE MOFETIL HYDROCHLORIDE
     Dosage: 2000 (UNKNOWN UNIT), ONCE DAILY
     Route: 065
     Dates: start: 20161025, end: 20161114

REACTIONS (2)
  - Metabolic acidosis [Recovered/Resolved]
  - Overdose [Unknown]

NARRATIVE: CASE EVENT DATE: 20161031
